FAERS Safety Report 10094788 (Version 1)
Quarter: 2014Q2

REPORT INFORMATION
  Report Type: Spontaneous
  Country: US (occurrence: None)
  Receive Date: 20140421
  Receipt Date: 20140421
  Transmission Date: 20141212
  Serious: Yes (Hospitalization)
  Sender: FDA-Public Use
  Company Number: None

PATIENT
  Age: 71 Year
  Sex: Female

DRUGS (2)
  1. AFINITOR [Suspect]
     Indication: BREAST CANCER FEMALE
     Route: 048
     Dates: start: 20140123
  2. EXEMESTANE [Suspect]
     Indication: BREAST CANCER FEMALE
     Route: 048
     Dates: start: 20140123

REACTIONS (2)
  - Unevaluable event [None]
  - Investigation [None]
